FAERS Safety Report 6682306-9 (Version None)
Quarter: 2010Q2

REPORT INFORMATION
  Report Type: 
  Country: None (occurrence: None)
  Receive Date: 20100414
  Receipt Date: 20100414
  Transmission Date: 20101027
  Serious: Yes (Disabling)
  Sender: FDA-Public Use
  Company Number: None

PATIENT
  Age: 103 Year
  Sex: Female
  Weight: 50.8029 kg

DRUGS (2)
  1. ACYCLOVIR [Suspect]
     Indication: HERPES ZOSTER
     Dosage: 400 MG 2 PER DAY
     Dates: start: 20100226, end: 20100308
  2. CIPROFLOXACIN [Suspect]
     Indication: URINARY TRACT INFECTION
     Dosage: 500 MG 2 PER DAY
     Dates: start: 20100226, end: 20100307

REACTIONS (5)
  - ABASIA [None]
  - DECREASED ACTIVITY [None]
  - DYSSTASIA [None]
  - JOINT RANGE OF MOTION DECREASED [None]
  - TENDON RUPTURE [None]
